FAERS Safety Report 13843126 (Version 2)
Quarter: 2017Q3

REPORT INFORMATION
  Report Type: Spontaneous
  Country: FR (occurrence: FR)
  Receive Date: 20170808
  Receipt Date: 20170810
  Transmission Date: 20171127
  Serious: Yes (Other)
  Sender: FDA-Public Use
  Company Number: FR-MERCK KGAA-2024312

PATIENT
  Age: 64 Year
  Sex: Female

DRUGS (2)
  1. EUTHYRAL (NOVOTHYRAL) [Concomitant]
  2. NOVOTHYROX [Suspect]
     Active Substance: LEVOTHYROXINE SODIUM
     Indication: PRODUCT USED FOR UNKNOWN INDICATION
     Dates: start: 201706, end: 201707

REACTIONS (5)
  - Arthralgia [Unknown]
  - Angina pectoris [Not Recovered/Not Resolved]
  - Fatigue [Unknown]
  - Muscle spasms [Not Recovered/Not Resolved]
  - Insomnia [Not Recovered/Not Resolved]

NARRATIVE: CASE EVENT DATE: 2017
